FAERS Safety Report 7327208-X (Version None)
Quarter: 2011Q1

REPORT INFORMATION
  Report Type: 
  Country: None (occurrence: None)
  Receive Date: 20110218
  Receipt Date: 20110210
  Transmission Date: 20110831
  Serious: Yes (Other)
  Sender: FDA-Public Use
  Company Number: 025830

PATIENT
  Age: 50 Year
  Sex: Female
  Weight: 70 kg

DRUGS (2)
  1. CORTISONE [Concomitant]
  2. CIMZIA [Suspect]
     Dosage: (ONCE ONLY SUBCUTANEOUS)
     Route: 058
     Dates: start: 20101213, end: 20101213

REACTIONS (3)
  - ERYTHEMA [None]
  - HYPERSENSITIVITY [None]
  - SKIN REACTION [None]
